FAERS Safety Report 11182809 (Version 2)
Quarter: 2015Q3

REPORT INFORMATION
  Report Type: Spontaneous
  Country: US (occurrence: US)
  Receive Date: 20150611
  Receipt Date: 20150702
  Transmission Date: 20151125
  Serious: No
  Sender: FDA-Public Use
  Company Number: US-PFIZER INC-2015191396

PATIENT
  Age: 50 Year
  Sex: Male
  Weight: 104 kg

DRUGS (4)
  1. TRILEPTAL [Concomitant]
     Active Substance: OXCARBAZEPINE
     Indication: COMPLEX PARTIAL SEIZURES
     Dosage: 600 MG TAB ,(2 TABS IN MORNING, 3 TABS AT NIGHT)
     Route: 048
     Dates: start: 20130326
  2. BRIVARACETAM [Concomitant]
     Active Substance: BRIVARACETAM
     Indication: COMPLEX PARTIAL SEIZURES
     Dosage: 50 MG, 2X/DAY
  3. LYRICA [Suspect]
     Active Substance: PREGABALIN
     Indication: COMPLEX PARTIAL SEIZURES
     Dosage: 150 MG, 2X/DAY (2 CAPSULES 2 TIMES A DAY)
     Route: 048
     Dates: start: 20120827
  4. HYDROCHLOROTHIAZIDE. [Concomitant]
     Active Substance: HYDROCHLOROTHIAZIDE
     Dosage: 12.5 MG, UNK
     Route: 048

REACTIONS (1)
  - Upper respiratory tract infection [Recovered/Resolved]
